FAERS Safety Report 17866935 (Version 3)
Quarter: 2020Q2

REPORT INFORMATION
  Report Type: Report from Study
  Country: None (occurrence: GB)
  Receive Date: 20200605
  Receipt Date: 20200630
  Transmission Date: 20200714
  Serious: Yes (Hospitalization)
  Sender: FDA-Public Use
  Company Number: GB-ABBVIE-20P-167-3412750-00

PATIENT
  Age: 80 Year
  Sex: Male

DRUGS (14)
  1. ZEROBASE [Concomitant]
     Active Substance: MINERAL OIL\PARAFFIN
     Indication: DRY SKIN
     Dosage: EMOLLIENT
     Route: 061
     Dates: start: 2016
  2. CODEINE [Concomitant]
     Active Substance: CODEINE
     Indication: PAIN IN JAW
     Route: 048
     Dates: start: 20190607
  3. BETAMETHASONE. [Concomitant]
     Active Substance: BETAMETHASONE
     Indication: PSORIASIS
     Route: 065
  4. MULTI-VITAMIN [Concomitant]
     Active Substance: .ALPHA.-TOCOPHEROL ACETATE, DL-\ASCORBIC ACID\CYANOCOBALAMIN\FLUORIDE ION\FOLIC ACID\NIACIN\PYRIDOXINE\RIBOFLAVIN\THIAMINE\VITAMIN A\VITAMIN D
     Indication: PROPHYLAXIS
     Route: 048
     Dates: start: 1998
  5. IMODIUM [Concomitant]
     Active Substance: LOPERAMIDE HYDROCHLORIDE
     Indication: DIARRHOEA
     Route: 048
     Dates: start: 20200402
  6. VENETOCLAX. [Suspect]
     Active Substance: VENETOCLAX
     Indication: MANTLE CELL LYMPHOMA
     Route: 048
     Dates: start: 20180628, end: 20200518
  7. OMEPRAZOLE. [Concomitant]
     Active Substance: OMEPRAZOLE
     Indication: GASTROOESOPHAGEAL REFLUX DISEASE
     Route: 048
     Dates: start: 201606
  8. IBRUTINIB [Suspect]
     Active Substance: IBRUTINIB
     Indication: MANTLE CELL LYMPHOMA
     Route: 048
     Dates: start: 20180628, end: 20200518
  9. GLUCOSAMINE SULPHATE [Concomitant]
     Active Substance: GLUCOSAMINE
     Indication: PROPHYLAXIS
     Route: 048
     Dates: start: 1998
  10. ENSTILAR FOAM SPRAY [Concomitant]
     Indication: DRY SKIN
     Dosage: 1 APPLICATION, FOAM SPRAY
     Route: 061
     Dates: start: 20191116
  11. ACICLOVIR [Concomitant]
     Active Substance: ACYCLOVIR
     Indication: PROPHYLAXIS
     Route: 048
     Dates: start: 20180628
  12. COTRIMOXAZOLE [Concomitant]
     Active Substance: SULFAMETHOXAZOLE\TRIMETHOPRIM
     Indication: PROPHYLAXIS
     Dosage: (M/TH)
     Route: 048
     Dates: start: 20180628
  13. AMITRIPTYLINE [Concomitant]
     Active Substance: AMITRIPTYLINE
     Indication: PAIN IN JAW
     Route: 048
     Dates: start: 20180831
  14. G-CSF [Concomitant]
     Active Substance: GRANULOCYTE COLONY-STIMULATING FACTOR NOS
     Indication: NEUTROPENIA
     Route: 065

REACTIONS (1)
  - Fungal abscess central nervous system [Recovered/Resolved]

NARRATIVE: CASE EVENT DATE: 20200518
